FAERS Safety Report 8121100-9 (Version None)
Quarter: 2012Q1

REPORT INFORMATION
  Report Type: 
  Country: None (occurrence: None)
  Receive Date: 20120203
  Receipt Date: 20120201
  Transmission Date: 20120608
  Serious: Yes (Other)
  Sender: FDA-Public Use
  Company Number: SP05511

PATIENT
  Age: 49 Year
  Sex: Male

DRUGS (2)
  1. OSMOPREP [Suspect]
     Indication: BOWEL PREPARATION
     Dosage: (16 DOSAGE FORMS), ORAL
     Route: 048
     Dates: start: 20120125, end: 20120125
  2. PENTASA [Concomitant]

REACTIONS (1)
  - MALLORY-WEISS SYNDROME [None]
